FAERS Safety Report 4831574-4 (Version None)
Quarter: 2005Q4

REPORT INFORMATION
  Report Type: 
  Country: None (occurrence: None)
  Receive Date: 20051116
  Receipt Date: 20051103
  Transmission Date: 20060501
  Serious: Yes (Hospitalization, Other)
  Sender: FDA-Public Use
  Company Number: 2005151968

PATIENT
  Age: 72 Year
  Sex: Female
  Weight: 58.9676 kg

DRUGS (6)
  1. AROMASIN [Suspect]
     Indication: BREAST CANCER
     Dosage: 25 MG (25 MG DAILY) ORAL 1.5 TO 2 YEARS AGO
     Route: 048
     Dates: end: 20051001
  2. DARVOCET [Concomitant]
  3. ALLERGY MEDICATION (ALLERGY MEDICATION) [Concomitant]
  4. VITAMINS (VITAMINS) [Concomitant]
  5. FLAXSEED OIL (LINSEED OIL) [Concomitant]
  6. GINKGO BILOBA (GINKO BILOBA) [Concomitant]

REACTIONS (6)
  - ABDOMINAL PAIN UPPER [None]
  - COLITIS ISCHAEMIC [None]
  - FEELING ABNORMAL [None]
  - HYPERHIDROSIS [None]
  - NAUSEA [None]
  - RECTAL HAEMORRHAGE [None]
